FAERS Safety Report 5763851-7 (Version None)
Quarter: 2008Q2

REPORT INFORMATION
  Report Type: 
  Country: None (occurrence: None)
  Receive Date: 20080602
  Receipt Date: 20080403
  Transmission Date: 20081010
  Serious: Yes (Other)
  Sender: FDA-Public Use
  Company Number: PHEH2008US02356

PATIENT
  Sex: Female

DRUGS (1)
  1. TEKTURNA [Suspect]

REACTIONS (5)
  - CHAPPED LIPS [None]
  - HYPERSENSITIVITY [None]
  - LIP DISCOLOURATION [None]
  - LIP SWELLING [None]
  - SWELLING FACE [None]
